FAERS Safety Report 23820162 (Version 4)
Quarter: 2024Q2

REPORT INFORMATION
  Report Type: Spontaneous
  Country: CA (occurrence: CA)
  Receive Date: 20240506
  Receipt Date: 20240614
  Transmission Date: 20240716
  Serious: Yes (Life-Threatening)
  Sender: FDA-Public Use
  Company Number: CA-PFIZER INC-PV202300087496

PATIENT
  Age: 49 Year
  Sex: Female
  Weight: 69.5 kg

DRUGS (10)
  1. ZIRABEV [Suspect]
     Active Substance: BEVACIZUMAB-BVZR
     Indication: Brain radiation necrosis
     Dosage: 7.5 MG/KG (585MG), EVERY 3 WEEKS X 3 REPEATS
     Route: 042
  2. ZIRABEV [Suspect]
     Active Substance: BEVACIZUMAB-BVZR
     Dosage: 585 MG, EVERY 3 WEEKS
     Route: 042
     Dates: start: 20230626
  3. ZIRABEV [Suspect]
     Active Substance: BEVACIZUMAB-BVZR
     Dosage: 585 MG, EVERY 3 WEEKS
     Route: 042
     Dates: start: 20230626
  4. ZIRABEV [Suspect]
     Active Substance: BEVACIZUMAB-BVZR
     Dosage: 585 MG, EVERY 3 WEEKS
     Route: 042
     Dates: start: 20230717
  5. ZIRABEV [Suspect]
     Active Substance: BEVACIZUMAB-BVZR
     Dosage: 585 MG, EVERY 3 WEEKS
     Route: 042
     Dates: start: 20230808
  6. ZIRABEV [Suspect]
     Active Substance: BEVACIZUMAB-BVZR
     Dosage: 585 MG, EVERY 3 WEEKS
     Route: 042
     Dates: start: 20230808
  7. ZIRABEV [Suspect]
     Active Substance: BEVACIZUMAB-BVZR
     Dosage: 585 MG
     Route: 042
     Dates: start: 20230828
  8. ZIRABEV [Suspect]
     Active Substance: BEVACIZUMAB-BVZR
     Dosage: 510 MG EVERY 3 WEEKS FOR 4 DOSES
     Route: 042
  9. ZIRABEV [Suspect]
     Active Substance: BEVACIZUMAB-BVZR
     Dosage: 510 MG (7.5MG/KG EVERY 3 WEEKS)
     Dates: start: 20240611
  10. DEXAMETHASONE [Concomitant]
     Active Substance: DEXAMETHASONE
     Indication: Brain radiation necrosis
     Dosage: 4 MG, 2X/DAY TAPERING DOWN

REACTIONS (3)
  - Off label use [Unknown]
  - Drug ineffective for unapproved indication [Unknown]
  - Blood pressure diastolic decreased [Unknown]

NARRATIVE: CASE EVENT DATE: 20230828
